FAERS Safety Report 9029575 (Version 1)
Quarter: 2013Q1

REPORT INFORMATION
  Report Type: Report from Study
  Country: GB (occurrence: GB)
  Receive Date: 20130125
  Receipt Date: 20130125
  Transmission Date: 20140127
  Serious: Yes (Other)
  Sender: FDA-Public Use
  Company Number: GB-AMGEN-GBRCT2013004833

PATIENT
  Age: 53 Year
  Sex: Male

DRUGS (2)
  1. ETANERCEPT [Suspect]
     Indication: ANKYLOSING SPONDYLITIS
     Dosage: 25 MG, 2 TIMES/WK
     Dates: start: 20041006
  2. SULPHASALAZINE [Concomitant]
     Dosage: UNK
     Dates: start: 200410

REACTIONS (1)
  - Cerebrovascular accident [Unknown]
